FAERS Safety Report 6617671-1 (Version None)
Quarter: 2010Q1

REPORT INFORMATION
  Report Type: 
  Country: None (occurrence: None)
  Receive Date: 20100223
  Receipt Date: 20100105
  Transmission Date: 20100710
  Serious: Yes (Hospitalization)
  Sender: FDA-Public Use
  Company Number: 003998

PATIENT
  Sex: Female
  Weight: 81.6 kg

DRUGS (5)
  1. CIMZIA [Suspect]
     Indication: CROHN'S DISEASE
     Dosage: (SUBCUTANEOUS)
     Route: 058
     Dates: start: 20090901
  2. PREDNISONE [Concomitant]
  3. IMURAN [Concomitant]
  4. CODEINE SULFATE [Concomitant]
  5. DEPO-PROVERA [Concomitant]

REACTIONS (1)
  - CROHN'S DISEASE [None]
